FAERS Safety Report 19647655 (Version 3)
Quarter: 2021Q3

REPORT INFORMATION
  Report Type: Report from Study
  Country: US (occurrence: US)
  Receive Date: 20210802
  Receipt Date: 20210914
  Transmission Date: 20211014
  Serious: Yes (Hospitalization)
  Sender: FDA-Public Use
  Company Number: US-PFIZER INC-2021824282

PATIENT
  Age: 18 Year
  Sex: Male
  Weight: 84.2 kg

DRUGS (6)
  1. VINCRISTINE SULFATE. [Suspect]
     Active Substance: VINCRISTINE SULFATE
     Indication: ACUTE LYMPHOCYTIC LEUKAEMIA
     Dosage: 2 MILLIGRAM, Q29 DAYS
     Route: 042
     Dates: start: 20191028
  2. INCB018424 [Suspect]
     Active Substance: RUXOLITINIB
     Indication: ACUTE LYMPHOCYTIC LEUKAEMIA
     Dosage: 100 MILLIGRAM, BID, 14D ON/14D OFF, TABLET
     Route: 048
     Dates: start: 20191015
  3. MERCAPTOPURINE. [Suspect]
     Active Substance: MERCAPTOPURINE
     Indication: ACUTE LYMPHOCYTIC LEUKAEMIA
     Dosage: 50 MILLIGRAM, QHS (M?F)/25 MILLIGRAM, QHS (SAT,SUN), TABLET
     Route: 048
     Dates: start: 20191015
  4. METHOTREXATE SODIUM. [Suspect]
     Active Substance: METHOTREXATE SODIUM
     Indication: ACUTE LYMPHOCYTIC LEUKAEMIA
     Dosage: 15 MILLIGRAM, Q3MONTHS
     Route: 037
     Dates: start: 20191014
  5. METHOTREXATE. [Suspect]
     Active Substance: METHOTREXATE
     Indication: ACUTE LYMPHOCYTIC LEUKAEMIA
     Dosage: 12.5 MILLIGRAM, QHS, QWK (MONDAY), TABLET
     Route: 048
     Dates: start: 20100824
  6. PREDNISONE. [Suspect]
     Active Substance: PREDNISONE
     Indication: ACUTE LYMPHOCYTIC LEUKAEMIA
     Dosage: 40 MILLIGRAM, BID (X 5 DAYS Q28 DAYS), TABLET
     Route: 048
     Dates: start: 20200727

REACTIONS (4)
  - Anaemia [Recovered/Resolved]
  - Pyrexia [Recovered/Resolved]
  - Rhinovirus infection [Recovered/Resolved]
  - Enterovirus infection [Recovered/Resolved]

NARRATIVE: CASE EVENT DATE: 20210621
